FAERS Safety Report 5166425-4 (Version None)
Quarter: 2006Q4

REPORT INFORMATION
  Report Type: 
  Country: None (occurrence: None)
  Receive Date: 20061207
  Receipt Date: 20061127
  Transmission Date: 20070319
  Serious: Yes (Hospitalization)
  Sender: FDA-Public Use
  Company Number: PHBS2006US18414

PATIENT
  Age: 22 Year
  Sex: Female

DRUGS (1)
  1. OXYTOCIN [Suspect]
     Indication: LABOUR INDUCTION

REACTIONS (3)
  - FAILED INDUCTION OF LABOUR [None]
  - POSTPARTUM HAEMORRHAGE [None]
  - UTERINE ATONY [None]
